FAERS Safety Report 8604829-5 (Version None)
Quarter: 2012Q3

REPORT INFORMATION
  Report Type: 
  Country: None (occurrence: None)
  Receive Date: 20120820
  Receipt Date: 20120810
  Transmission Date: 20120928
  Serious: Yes (Hospitalization)
  Sender: FDA-Public Use
  Company Number: DE-JNJFOC-20120518930

PATIENT
  Sex: Female
  Weight: 75 kg

DRUGS (4)
  1. STELARA [Suspect]
     Route: 058
     Dates: start: 20120401
  2. ZOPICLON [Concomitant]
     Indication: SLEEP DISORDER
     Route: 065
  3. DIOVAN [Concomitant]
     Indication: HYPERTENSION
     Route: 065
  4. STELARA [Suspect]
     Indication: PSORIASIS
     Route: 058
     Dates: start: 20101210

REACTIONS (4)
  - STEVENS-JOHNSON SYNDROME [None]
  - ACQUIRED EPIDERMOLYSIS BULLOSA [None]
  - HAEMORRHOIDS [None]
  - GASTRITIS [None]
